FAERS Safety Report 23516241 (Version 1)
Quarter: 2024Q1

REPORT INFORMATION
  Report Type: Spontaneous
  Country: IN (occurrence: None)
  Receive Date: 20240213
  Receipt Date: 20240213
  Transmission Date: 20240410
  Serious: Yes (Death)
  Sender: FDA-Public Use
  Company Number: 2024A034799

PATIENT
  Age: 35 Year
  Sex: Male
  Weight: 64 kg

DRUGS (1)
  1. LYNPARZA [Suspect]
     Active Substance: OLAPARIB
     Indication: Adenocarcinoma pancreas
     Route: 048

REACTIONS (1)
  - Death [Fatal]
